FAERS Safety Report 9493399 (Version 2)
Quarter: 2013Q4

REPORT INFORMATION
  Report Type: Report from Study
  Country: US (occurrence: US)
  Receive Date: 20130902
  Receipt Date: 20131204
  Transmission Date: 20140711
  Serious: Yes (Hospitalization, Other)
  Sender: FDA-Public Use
  Company Number: PHEH2013US018165

PATIENT
  Age: 75 Year
  Sex: Female

DRUGS (2)
  1. TASIGNA [Suspect]
     Indication: NEOPLASM MALIGNANT
     Dosage: 200 MG, BID
     Route: 048
     Dates: start: 20100923
  2. TASIGNA [Suspect]
     Indication: OFF LABEL USE
     Route: 048

REACTIONS (4)
  - Infection [Recovering/Resolving]
  - Cardiac disorder [Recovering/Resolving]
  - Oedema [Recovering/Resolving]
  - Weight decreased [Not Recovered/Not Resolved]
